FAERS Safety Report 10623737 (Version 2)
Quarter: 2014Q4

REPORT INFORMATION
  Report Type: Spontaneous
  Country: CH (occurrence: CH)
  Receive Date: 20141203
  Receipt Date: 20141205
  Transmission Date: 20150529
  Serious: Yes (Hospitalization, Other)
  Sender: FDA-Public Use
  Company Number: CH-ASTRAZENECA-2014SE90920

PATIENT
  Age: 26926 Day
  Sex: Female
  Weight: 61 kg

DRUGS (15)
  1. ASPIRIN CARDIO [Concomitant]
     Active Substance: ASPIRIN
     Route: 048
  2. KCL HAUSMANN [Concomitant]
     Route: 048
     Dates: start: 20140919, end: 20141003
  3. AZICLAV [Concomitant]
     Indication: COUGH
  4. TOREM [Interacting]
     Active Substance: TORSEMIDE
     Route: 048
     Dates: end: 201410
  5. BELOC ZOK [Concomitant]
     Active Substance: METOPROLOL SUCCINATE
     Route: 048
  6. ZESTRIL [Suspect]
     Active Substance: LISINOPRIL
     Indication: CORONARY ARTERY DISEASE
     Route: 048
     Dates: end: 20141003
  7. CLINDAMYCIN [Suspect]
     Active Substance: CLINDAMYCIN\CLINDAMYCIN PHOSPHATE
     Indication: PNEUMONIA NECROTISING
     Route: 048
     Dates: start: 20140929, end: 20141003
  8. CORDARONE [Concomitant]
     Active Substance: AMIODARONE HYDROCHLORIDE
     Route: 048
     Dates: start: 201409
  9. FRAGMIN [Concomitant]
     Active Substance: DALTEPARIN SODIUM
     Route: 058
     Dates: start: 20140926
  10. HEPARIN BICHSEL [Concomitant]
     Route: 042
     Dates: start: 20140917, end: 20140926
  11. ANTIBIOTICS [Concomitant]
     Active Substance: UNSPECIFIED INGREDIENT
  12. CIPROXIN [Interacting]
     Active Substance: CIPROFLOXACIN
     Indication: PNEUMONIA NECROTISING
     Route: 048
     Dates: start: 20140929, end: 20141003
  13. SERTRALIN PFIZER [Concomitant]
     Active Substance: SERTRALINE HYDROCHLORIDE
     Route: 048
  14. PIPERACILLIN AND TAZOBACTAM [Interacting]
     Active Substance: PIPERACILLIN SODIUM\TAZOBACTAM SODIUM
     Indication: PNEUMONIA NECROTISING
     Route: 042
     Dates: start: 20140922, end: 20140929
  15. AZICLAV [Concomitant]
     Indication: SPUTUM DISCOLOURED

REACTIONS (3)
  - Drug interaction [Unknown]
  - Tubulointerstitial nephritis [Recovering/Resolving]
  - Acute kidney injury [Recovering/Resolving]

NARRATIVE: CASE EVENT DATE: 20141003
